FAERS Safety Report 17573018 (Version 1)
Quarter: 2020Q1

REPORT INFORMATION
  Report Type: Spontaneous
  Country: GB (occurrence: CN)
  Receive Date: 20200323
  Receipt Date: 20200323
  Transmission Date: 20200409
  Serious: Yes (Hospitalization, Other)
  Sender: FDA-Public Use
  Company Number: CN-ASTELLAS-2020US010146

PATIENT
  Age: 68 Year
  Sex: Female

DRUGS (1)
  1. ERLOTINIB [Suspect]
     Active Substance: ERLOTINIB
     Indication: LUNG ADENOCARCINOMA
     Dosage: UNK UNK, UNKNOWN FREQ.
     Route: 048

REACTIONS (6)
  - Oral discharge [Not Recovered/Not Resolved]
  - Rash [Recovered/Resolved]
  - Melaena [Not Recovered/Not Resolved]
  - Abdominal discomfort [Not Recovered/Not Resolved]
  - Haemorrhage [Not Recovered/Not Resolved]
  - Dyspepsia [Not Recovered/Not Resolved]
